FAERS Safety Report 8510407 (Version 3)
Quarter: 2016Q4

REPORT INFORMATION
  Report Type: Report from Study
  Country: None (occurrence: ES)
  Receive Date: 20120411
  Receipt Date: 20161004
  Transmission Date: 20170207
  Serious: Yes (Hospitalization)
  Sender: FDA-Public Use
  Company Number: ES-BAXTER-2012BH004560

PATIENT
  Age: 64 Year
  Sex: Female

DRUGS (44)
  1. VINCRISTINE [Suspect]
     Active Substance: VINCRISTINE
     Indication: DIFFUSE LARGE B-CELL LYMPHOMA
     Dosage: MOST RECENT DOSE PRIOR TO NEUTROPENIA
     Route: 040
     Dates: start: 20111222
  2. OBINUTUZUMAB [Suspect]
     Active Substance: OBINUTUZUMAB
     Dosage: MOST RECENT DOSE PRIOR TO NEUTROPENIA
     Route: 042
     Dates: start: 20111228
  3. OBINUTUZUMAB [Suspect]
     Active Substance: OBINUTUZUMAB
     Dosage: MOST RECENT DOSE PRIOR TO RESPIRATORY INFECTION DUE TO STREPTOCOCCUS PNEUMONIAE 70 BACTERIA
     Route: 042
     Dates: start: 20120417
  4. MAGALDRATE [Concomitant]
     Active Substance: MAGALDRATE
     Indication: CHRONIC GASTRITIS
     Route: 065
  5. PARACETAMOL [Concomitant]
     Active Substance: ACETAMINOPHEN
     Indication: BACK PAIN
     Route: 065
     Dates: start: 20111221, end: 20120606
  6. G-CSF [Concomitant]
     Active Substance: GRANULOCYTE COLONY-STIMULATING FACTOR NOS
     Indication: PRODUCT USED FOR UNKNOWN INDICATION
     Route: 065
  7. GENOXAL [Suspect]
     Active Substance: CYCLOPHOSPHAMIDE
     Indication: DIFFUSE LARGE B-CELL LYMPHOMA
     Dosage: MOST RECENT DOSE PRIOR TO NEUTROPENIA
     Route: 042
     Dates: start: 20111222
  8. DOXORUBICIN [Suspect]
     Active Substance: DOXORUBICIN
     Indication: DIFFUSE LARGE B-CELL LYMPHOMA
     Dosage: MOST RECENT DOSE PRIOR TO NEUTROPENIA
     Route: 042
     Dates: start: 20111222
  9. DOXORUBICIN [Suspect]
     Active Substance: DOXORUBICIN
     Dosage: MOST RECENT DOSE PRIOR TO FEBRILE NEUTROPENIA
     Route: 042
     Dates: start: 20120321
  10. VINCRISTINE [Suspect]
     Active Substance: VINCRISTINE
     Dosage: MOST RECENT DOSE PRIOR TO FEBRILE NEUTROPENIA
     Route: 040
     Dates: start: 20120321
  11. DEXCHLORPHENIRAMINE MALEATE. [Concomitant]
     Active Substance: DEXCHLORPHENIRAMINE MALEATE
     Indication: PREMEDICATION
     Route: 065
     Dates: start: 20111221, end: 20120606
  12. ENANTYUM [Concomitant]
     Active Substance: DEXKETOPROFEN TROMETAMOL
     Indication: BACK PAIN
     Route: 065
     Dates: start: 20120504, end: 20121214
  13. PIPERACILLIN SODIUM/TAZOBACTAM SODIUM [Concomitant]
     Active Substance: PIPERACILLIN SODIUM\TAZOBACTAM SODIUM
     Indication: PRODUCT USED FOR UNKNOWN INDICATION
     Route: 065
  14. PREDNISONE. [Suspect]
     Active Substance: PREDNISONE
     Indication: DIFFUSE LARGE B-CELL LYMPHOMA
     Route: 048
     Dates: start: 20111221
  15. PREDNISONE. [Suspect]
     Active Substance: PREDNISONE
     Dosage: MOST RECENT DOSE PRIOR TO FEBRILE NEUTROPENIA
     Route: 048
     Dates: start: 20120325
  16. PREDNISONE. [Suspect]
     Active Substance: PREDNISONE
     Dosage: MOST RECENT DOSE PRIOR TO RESPIRATORY INFECTION DUE TO STREPTOCOCCUS PNEUMONIAE 70 BACTERIA
     Route: 048
     Dates: start: 20120421
  17. OBINUTUZUMAB [Suspect]
     Active Substance: OBINUTUZUMAB
     Indication: DIFFUSE LARGE B-CELL LYMPHOMA
     Route: 042
     Dates: start: 20111221
  18. RITUXIMAB [Suspect]
     Active Substance: RITUXIMAB
     Indication: DIFFUSE LARGE B-CELL LYMPHOMA
     Route: 042
  19. ALLOPURINOL. [Concomitant]
     Active Substance: ALLOPURINOL
     Indication: TUMOUR LYSIS SYNDROME
     Route: 065
     Dates: start: 20111221, end: 20120421
  20. CIPROFLOXACIN. [Concomitant]
     Active Substance: CIPROFLOXACIN
     Indication: GASTROENTERITIS
     Route: 065
     Dates: start: 20120219
  21. FILGRASTIM [Concomitant]
     Active Substance: FILGRASTIM
     Indication: NEUTROPENIA
     Route: 065
     Dates: start: 20120328, end: 20120403
  22. FLUCONAZOLE. [Concomitant]
     Active Substance: FLUCONAZOLE
     Indication: NEUTROPENIA
     Route: 065
     Dates: start: 20120328, end: 20120404
  23. OBINUTUZUMAB [Suspect]
     Active Substance: OBINUTUZUMAB
     Dosage: MOST RECENT DOSE PRIOR TO FEBRILE NEUTROPENIA
     Route: 042
     Dates: start: 20120321
  24. ADOLONTA [Concomitant]
     Active Substance: TRAMADOL HYDROCHLORIDE
     Indication: BACK PAIN
     Route: 065
     Dates: start: 20120425, end: 20120425
  25. GENOXAL [Suspect]
     Active Substance: CYCLOPHOSPHAMIDE
     Dosage: MOST RECENT DOSE PRIOR TO RESPIRATORY INFECTION DUE TO STREPTOCOCCUS PNEUMONIAE 70 BACTERIA
     Route: 042
     Dates: start: 20120417
  26. VINCRISTINE [Suspect]
     Active Substance: VINCRISTINE
     Dosage: MOST RECENT DOSE PRIOR TO RESPIRATORY INFECTION DUE TO STREPTOCOCCUS PNEUMONIAE 70 BACTERIA
     Route: 040
     Dates: start: 20120417
  27. OMEPRAZOLE. [Concomitant]
     Active Substance: OMEPRAZOLE
     Indication: CHRONIC GASTRITIS
     Route: 065
  28. CIPROFLOXACIN. [Concomitant]
     Active Substance: CIPROFLOXACIN
     Indication: PYREXIA
     Route: 065
     Dates: start: 20120405, end: 20120409
  29. MAGNESIUM [Concomitant]
     Active Substance: MAGNESIUM
     Indication: HYPOMAGNESAEMIA
     Route: 065
     Dates: start: 20120504, end: 20120515
  30. DOXORUBICIN [Suspect]
     Active Substance: DOXORUBICIN
     Dosage: MOST RECENT DOSE PRIOR TO RESPIRATORY INFECTION DUE TO STREPTOCOCCUS PNEUMONIAE 70 BACTERIA
     Route: 042
     Dates: start: 20120417
  31. PARACETAMOL [Concomitant]
     Active Substance: ACETAMINOPHEN
     Route: 065
     Dates: start: 20120504, end: 20120504
  32. FILGRASTIM [Concomitant]
     Active Substance: FILGRASTIM
     Route: 065
     Dates: start: 20120310, end: 20120310
  33. FILGRASTIM [Concomitant]
     Active Substance: FILGRASTIM
     Route: 065
     Dates: start: 20120425, end: 20120426
  34. GENOXAL [Suspect]
     Active Substance: CYCLOPHOSPHAMIDE
     Dosage: MOST RECENT DOSE PRIOR TO FEBRILE NEUTROPENIA
     Route: 042
     Dates: start: 20120321
  35. LEVOTHYROXINE SODIUM. [Concomitant]
     Active Substance: LEVOTHYROXINE SODIUM
     Indication: THYROIDECTOMY
     Route: 065
  36. FLUCONAZOLE. [Concomitant]
     Active Substance: FLUCONAZOLE
     Indication: PYREXIA
  37. METRONIDAZOLE. [Concomitant]
     Active Substance: METRONIDAZOLE
     Indication: PYREXIA
  38. PREDNISONE. [Suspect]
     Active Substance: PREDNISONE
     Dosage: MOST RECENT DOSE PRIOR TO NEUTROPENIA
     Route: 048
     Dates: start: 20111225
  39. PARACETAMOL [Concomitant]
     Active Substance: ACETAMINOPHEN
     Indication: PREMEDICATION
     Route: 065
     Dates: start: 20120429, end: 20120429
  40. GRANISETRON HYDROCHLORIDE. [Concomitant]
     Active Substance: GRANISETRON HYDROCHLORIDE
     Indication: PREMEDICATION
     Route: 065
     Dates: start: 20111222, end: 20120417
  41. CIPROFLOXACIN. [Concomitant]
     Active Substance: CIPROFLOXACIN
     Indication: NEUTROPENIA
     Route: 065
     Dates: start: 20120405, end: 20120405
  42. METRONIDAZOLE. [Concomitant]
     Active Substance: METRONIDAZOLE
     Indication: NEUTROPENIA
     Route: 065
     Dates: start: 20120405, end: 20120409
  43. METHOTREXATE. [Concomitant]
     Active Substance: METHOTREXATE
     Indication: PROPHYLAXIS
     Route: 065
     Dates: start: 20120229, end: 20120229
  44. NOREPINEPHRINE [Concomitant]
     Active Substance: NOREPINEPHRINE\NOREPINEPHRINE BITARTRATE
     Indication: HYPOTENSION
     Route: 065
     Dates: start: 20120425, end: 20120426

REACTIONS (7)
  - Hypotension [Unknown]
  - Febrile neutropenia [Recovered/Resolved]
  - Respiratory tract infection [Recovered/Resolved]
  - Respiratory failure [Unknown]
  - Pneumococcal infection [Recovered/Resolved]
  - Neutropenia [Unknown]
  - Neutropenia [Recovered/Resolved]

NARRATIVE: CASE EVENT DATE: 20111231
